FAERS Safety Report 6100602-0 (Version None)
Quarter: 2009Q1

REPORT INFORMATION
  Report Type: 
  Country: None (occurrence: None)
  Receive Date: 20090303
  Receipt Date: 20090223
  Transmission Date: 20090719
  Serious: Yes (Other)
  Sender: FDA-Public Use
  Company Number: US-WYE-H04874808

PATIENT
  Sex: Female

DRUGS (6)
  1. PREMARIN [Suspect]
  2. PREMPRO [Suspect]
  3. ESTRADIOL [Suspect]
  4. ESTRONE [Suspect]
  5. PROVERA [Suspect]
  6. ESTRADERM [Suspect]

REACTIONS (1)
  - BREAST CANCER METASTATIC [None]
